FAERS Safety Report 26069548 (Version 1)
Quarter: 2025Q4

REPORT INFORMATION
  Report Type: Spontaneous
  Country: EU (occurrence: EU)
  Receive Date: 20251120
  Receipt Date: 20251120
  Transmission Date: 20260118
  Serious: Yes (Other)
  Sender: RANBAXY
  Company Number: EU-EMA-DD-20250801-7482701-112000

PATIENT
  Age: 8 Month
  Sex: Male

DRUGS (10)
  1. DOXORUBICIN HYDROCHLORIDE [Suspect]
     Active Substance: DOXORUBICIN HYDROCHLORIDE
     Indication: Neuroblastoma
     Dosage: 2VP-CARBO (2 CYCLES OF VINCRISTINE, PREDNISONE, AND CARBOPLATIN), 4CADO (4 CYCLES OF CYCLOPHOSPHAMID
     Route: 065
  2. ISOTRETINOIN [Suspect]
     Active Substance: ISOTRETINOIN
     Indication: Neuroblastoma
     Dosage: UNK
     Route: 065
  3. MORPHINE [Suspect]
     Active Substance: MORPHINE
     Indication: Analgesic therapy
     Dosage: CONTINUOUS INFUSION
     Route: 065
  4. DINUTUXIMAB BETA [Suspect]
     Active Substance: DINUTUXIMAB BETA
     Indication: Neuroblastoma
     Dosage: 100 MILLIGRAM/SQ. METER, 1DOSE/1CYCLIC, 5 CYCLES (PER CYCLE AT A TOTAL DOSE OF 100 MG/M2, 3.3 MG/KG
     Route: 065
  5. VINCRISTINE [Concomitant]
     Active Substance: VINCRISTINE
     Indication: Neuroblastoma
     Dosage: 2VP-CARBO (2 CYCLES OF VINCRISTINE, PREDNISONE, AND CARBOPLATIN), 4CADO (4 CYCLES OF CYCLOPHOSPHAMID
     Route: 065
  6. PREDNISONE [Concomitant]
     Active Substance: PREDNISONE
     Indication: Neuroblastoma
     Dosage: 2VP-CARBO (2 CYCLES OF VINCRISTINE, PREDNISONE, AND CARBOPLATIN), 4CADO (4 CYCLES OF CYCLOPHOSPHAMID
     Route: 065
  7. ETOPOSIDE [Concomitant]
     Active Substance: ETOPOSIDE
     Indication: Neuroblastoma
     Dosage: 2VP-CARBO (2 CYCLES OF VINCRISTINE, PREDNISONE, AND CARBOPLATIN), 4CADO (4 CYCLES OF CYCLOPHOSPHAMID
     Route: 065
  8. CYCLOPHOSPHAMIDE [Concomitant]
     Active Substance: CYCLOPHOSPHAMIDE
     Indication: Neuroblastoma
     Dosage: 2VP-CARBO (2 CYCLES OF VINCRISTINE, PREDNISONE, AND CARBOPLATIN), 4CADO (4 CYCLES OF CYCLOPHOSPHAMID
     Route: 065
  9. CISPLATIN [Concomitant]
     Active Substance: CISPLATIN
     Indication: Neuroblastoma
     Dosage: 2VP-CARBO (2 CYCLES OF VINCRISTINE, PREDNISONE, AND CARBOPLATIN), 4CADO (4 CYCLES OF CYCLOPHOSPHAMID
     Route: 065
  10. CARBOPLATIN [Concomitant]
     Active Substance: CARBOPLATIN
     Indication: Neuroblastoma
     Dosage: 2VP-CARBO (2 CYCLES OF VINCRISTINE, PREDNISONE, AND CARBOPLATIN), 4CADO (4 CYCLES OF CYCLOPHOSPHAMID
     Route: 065

REACTIONS (9)
  - Hypokalaemia [Unknown]
  - Capillary leak syndrome [Recovering/Resolving]
  - Hypotension [Unknown]
  - Subileus [Unknown]
  - Oedema [Unknown]
  - Constipation [Unknown]
  - Pyrexia [Unknown]
  - Diarrhoea [Unknown]
  - Off label use [Recovered/Resolved]
